FAERS Safety Report 15324720 (Version 1)
Quarter: 2018Q3

REPORT INFORMATION
  Report Type: Spontaneous
  Country: SE (occurrence: SE)
  Receive Date: 20180828
  Receipt Date: 20180828
  Transmission Date: 20181010
  Serious: Yes (Death)
  Sender: FDA-Public Use
  Company Number: SE-CLINIGEN GROUP PLC/ CLINIGEN HEALTHCARE LTD-SE-CLGN-18-00332

PATIENT
  Age: 34 Year
  Sex: Male

DRUGS (1)
  1. FOSCARNET SODIUM. [Suspect]
     Active Substance: FOSCARNET SODIUM
     Indication: CYTOMEGALOVIRUS INFECTION
     Route: 042

REACTIONS (3)
  - Acute respiratory distress syndrome [Fatal]
  - Off label use [Unknown]
  - Anaplastic large-cell lymphoma [Fatal]
